FAERS Safety Report 9260080 (Version 2)
Quarter: 2013Q2

REPORT INFORMATION
  Report Type: Spontaneous
  Country: US (occurrence: US)
  Receive Date: 20130429
  Receipt Date: 20130523
  Transmission Date: 20140414
  Serious: Yes (Hospitalization)
  Sender: FDA-Public Use
  Company Number: US-AMGEN-USASP2013028609

PATIENT
  Age: 69 Year
  Sex: Female

DRUGS (1)
  1. PROLIA [Suspect]
     Indication: OSTEOPOROSIS POSTMENOPAUSAL
     Dosage: UNK
     Dates: start: 20130331

REACTIONS (4)
  - Blood calcium abnormal [Unknown]
  - Vitamin D abnormal [Unknown]
  - Blood parathyroid hormone abnormal [Unknown]
  - Blood phosphorus abnormal [Unknown]
